FAERS Safety Report 23470439 (Version 1)
Quarter: 2024Q1

REPORT INFORMATION
  Report Type: Spontaneous
  Country: CN (occurrence: CN)
  Receive Date: 20240202
  Receipt Date: 20240202
  Transmission Date: 20240410
  Serious: Yes (Life-Threatening, Hospitalization, Other)
  Sender: FDA-Public Use
  Company Number: CN-PFIZER INC-PV202400014562

PATIENT
  Age: 84 Year
  Sex: Female

DRUGS (5)
  1. VFEND [Suspect]
     Active Substance: VORICONAZOLE
     Indication: Cryptococcosis
     Dosage: 0.2 G, 2X/DAY
     Route: 048
     Dates: start: 20231221, end: 20231226
  2. VFEND [Suspect]
     Active Substance: VORICONAZOLE
     Indication: Sepsis
  3. VFEND [Suspect]
     Active Substance: VORICONAZOLE
     Indication: Fungal infection
  4. FLUCYTOSINE [Suspect]
     Active Substance: FLUCYTOSINE
     Indication: Cryptococcosis
     Dosage: 3 DF, 4X/DAY
     Route: 048
     Dates: start: 20231223, end: 20240101
  5. FLUCYTOSINE [Suspect]
     Active Substance: FLUCYTOSINE
     Indication: Sepsis

REACTIONS (1)
  - Myelosuppression [Recovering/Resolving]

NARRATIVE: CASE EVENT DATE: 20231223
